FAERS Safety Report 20195457 (Version 1)
Quarter: 2021Q4

REPORT INFORMATION
  Report Type: Spontaneous
  Country: US (occurrence: None)
  Receive Date: 20211216
  Receipt Date: 20211216
  Transmission Date: 20220303
  Serious: Yes (Disabling)
  Sender: FDA-Public Use
  Company Number: None

PATIENT
  Age: 33 Year
  Sex: Female
  Weight: 74.25 kg

DRUGS (4)
  1. METHOCARBAMOL [Suspect]
     Active Substance: METHOCARBAMOL
     Indication: Back pain
     Dosage: FREQUENCY : 3 TIMES A DAY;?
     Route: 048
     Dates: start: 20211209, end: 20211213
  2. PRISTIQ EXTENDED-RELEASE [Concomitant]
     Active Substance: DESVENLAFAXINE SUCCINATE
  3. FISH OIL [Concomitant]
  4. VITAMINS [Concomitant]
     Active Substance: VITAMINS

REACTIONS (3)
  - Dry eye [None]
  - Eye pruritus [None]
  - Nasal dryness [None]

NARRATIVE: CASE EVENT DATE: 20211211
